FAERS Safety Report 11566371 (Version 1)
Quarter: 2015Q3

REPORT INFORMATION
  Report Type: Spontaneous
  Country: US (occurrence: US)
  Receive Date: 20150916
  Receipt Date: 20150916
  Transmission Date: 20151125
  Serious: No
  Sender: FDA-Public Use
  Company Number: US-ELI_LILLY_AND_COMPANY-US200906000744

PATIENT
  Age: 80 Year
  Sex: Female

DRUGS (3)
  1. FORTEO [Suspect]
     Active Substance: TERIPARATIDE
  2. FORTEO [Suspect]
     Active Substance: TERIPARATIDE
     Dosage: 20 UG, DAILY (1/D)
     Dates: start: 200905
  3. FORTEO [Suspect]
     Active Substance: TERIPARATIDE
     Dates: start: 200905

REACTIONS (4)
  - Asthenia [Unknown]
  - Pain [Recovering/Resolving]
  - Back pain [Recovering/Resolving]
  - Muscle strain [Unknown]

NARRATIVE: CASE EVENT DATE: 200905
